FAERS Safety Report 6421759-8 (Version None)
Quarter: 2009Q4

REPORT INFORMATION
  Report Type: 
  Country: None (occurrence: None)
  Receive Date: 20091030
  Receipt Date: 20091023
  Transmission Date: 20100525
  Serious: Yes (Death)
  Sender: FDA-Public Use
  Company Number: A0782586A

PATIENT
  Age: 12 Year
  Sex: Female

DRUGS (6)
  1. ADVAIR DISKUS 100/50 [Suspect]
     Indication: ASTHMA
     Dosage: 1PUFF TWICE PER DAY
     Route: 055
  2. ALBUTEROL [Concomitant]
     Route: 065
  3. ZYRTEC [Concomitant]
  4. FLUTICASONE PROPIONATE [Concomitant]
  5. SINGULAIR [Concomitant]
  6. VENTOLIN [Concomitant]

REACTIONS (3)
  - ASTHMA [None]
  - BRONCHIOLITIS [None]
  - PNEUMONIA [None]
